FAERS Safety Report 24227297 (Version 1)
Quarter: 2024Q3

REPORT INFORMATION
  Report Type: Report from Study
  Country: US (occurrence: US)
  Receive Date: 20240820
  Receipt Date: 20240820
  Transmission Date: 20241017
  Serious: Yes (Other)
  Sender: SUNOVION
  Company Number: US-SMPA-2024SPA001118AA

PATIENT

DRUGS (2)
  1. ORGOVYX [Suspect]
     Active Substance: RELUGOLIX
     Indication: Prostate cancer
     Dosage: 120 MG, QD
     Route: 048
     Dates: start: 20220630
  2. XTANDI [Suspect]
     Active Substance: ENZALUTAMIDE
     Dosage: UNKNOWN
     Route: 065

REACTIONS (4)
  - Erectile dysfunction [Unknown]
  - Pain [Unknown]
  - Asthenia [Unknown]
  - Incorrect dose administered [Unknown]
